APPROVED DRUG PRODUCT: AMPICILLIN SODIUM
Active Ingredient: AMPICILLIN SODIUM
Strength: EQ 2GM BASE/VIAL
Dosage Form/Route: INJECTABLE;INJECTION
Application: A201025 | Product #004 | TE Code: AP
Applicant: ONESOURCE SPECIALTY PTE LTD
Approved: Apr 9, 2014 | RLD: No | RS: No | Type: RX